FAERS Safety Report 5638887-7 (Version None)
Quarter: 2008Q1

REPORT INFORMATION
  Report Type: 
  Country: None (occurrence: None)
  Receive Date: 20080226
  Receipt Date: 20050314
  Transmission Date: 20080703
  Serious: Yes (Disabling)
  Sender: FDA-Public Use
  Company Number: IL-ROCHE-548452

PATIENT
  Age: 30 Year
  Sex: Male

DRUGS (6)
  1. ROACCUTANE [Suspect]
     Indication: ACNE
     Route: 065
     Dates: start: 19991125, end: 19991225
  2. ROACCUTANE [Suspect]
     Route: 065
     Dates: start: 19991225, end: 20000326
  3. ELOCON [Suspect]
     Route: 065
     Dates: start: 20000326, end: 20000405
  4. ELOCON [Suspect]
     Route: 065
     Dates: start: 20000522, end: 20000529
  5. CHLORAMPHENICOL [Concomitant]
     Indication: ECZEMA
     Dosage: DRUG REPORTED AS THREOLONE (PREDNISOLONE AND CHLORAMPHENICOL). INDICATION REPORTED AS EXZEMA AND PU+
     Dates: start: 20000507, end: 20000501
  6. PREDNISOLONE [Concomitant]
     Indication: ECZEMA
     Dosage: DRUG REPORTED AS THREOLONE (PREDNISOLONE AND CHLORAMPHENICOL). INDICATION REPORTED AS EXZEMA AND PU+
     Dates: start: 20000507, end: 20000501

REACTIONS (18)
  - APATHY [None]
  - ASTHENIA [None]
  - DRY SKIN [None]
  - ECZEMA [None]
  - FOLLICULITIS [None]
  - INSOMNIA [None]
  - KERATOCONJUNCTIVITIS SICCA [None]
  - MAJOR DEPRESSION [None]
  - PAIN OF SKIN [None]
  - PHOTOSENSITIVITY REACTION [None]
  - PRURITUS [None]
  - RASH [None]
  - RESTLESSNESS [None]
  - SEBACEOUS GLANDS OVERACTIVITY [None]
  - SKIN BURNING SENSATION [None]
  - SKIN EXFOLIATION [None]
  - SKIN FRAGILITY [None]
  - TEMPERATURE INTOLERANCE [None]
